FAERS Safety Report 15167506 (Version 4)
Quarter: 2020Q1

REPORT INFORMATION
  Report Type: Report from Study
  Country: US (occurrence: US)
  Receive Date: 20180719
  Receipt Date: 20200305
  Transmission Date: 20200409
  Serious: Yes (Hospitalization, Other)
  Sender: FDA-Public Use
  Company Number: US-ACTELION-A-NJ2018-175576

PATIENT
  Age: 62 Year
  Sex: Male

DRUGS (27)
  1. ATORVASTATIN [Concomitant]
     Active Substance: ATORVASTATIN
  2. PROMETHAZINE [Concomitant]
     Active Substance: PROMETHAZINE HYDROCHLORIDE
  3. SLOW-MAG [Concomitant]
     Active Substance: MAGNESIUM CHLORIDE
  4. HUMULIN R [Concomitant]
     Active Substance: INSULIN HUMAN
  5. COLACE [Concomitant]
     Active Substance: DOCUSATE SODIUM
  6. VITAMIN C [Concomitant]
     Active Substance: ASCORBIC ACID
  7. TRAZODONE [Concomitant]
     Active Substance: TRAZODONE HYDROCHLORIDE
  8. METFORMIN [Concomitant]
     Active Substance: METFORMIN HYDROCHLORIDE
  9. METOCLOPRAMIDE. [Concomitant]
     Active Substance: METOCLOPRAMIDE
  10. NARCAN [Concomitant]
     Active Substance: NALOXONE HYDROCHLORIDE
  11. TESTOSTERONE CYPIONATE. [Concomitant]
     Active Substance: TESTOSTERONE CYPIONATE
  12. MORPHINE [Concomitant]
     Active Substance: MORPHINE
  13. NORTRIPTYLINE [Concomitant]
     Active Substance: NORTRIPTYLINE
  14. BISACODYL. [Concomitant]
     Active Substance: BISACODYL
  15. METHADONE [Concomitant]
     Active Substance: METHADONE HYDROCHLORIDE
  16. OPSUMIT [Suspect]
     Active Substance: MACITENTAN
     Indication: PULMONARY HYPERTENSION
     Dosage: 10 MG, QD
     Route: 048
     Dates: start: 20171003
  17. HUMULIN N [Concomitant]
     Active Substance: INSULIN HUMAN
  18. PRADAXA [Concomitant]
     Active Substance: DABIGATRAN ETEXILATE MESYLATE
  19. PANTOPRAZOLE [Concomitant]
     Active Substance: PANTOPRAZOLE
  20. ASA [Concomitant]
     Active Substance: ASPIRIN
  21. TYLENOL [Concomitant]
     Active Substance: ACETAMINOPHEN
  22. FUROSEMIDE. [Concomitant]
     Active Substance: FUROSEMIDE
  23. SERTRALINE [Concomitant]
     Active Substance: SERTRALINE HYDROCHLORIDE
  24. FLOMAX [Concomitant]
     Active Substance: TAMSULOSIN HYDROCHLORIDE
  25. GLIPIZIDE. [Suspect]
     Active Substance: GLIPIZIDE
     Indication: PRODUCT USED FOR UNKNOWN INDICATION
     Route: 065
  26. METOPROLOL. [Concomitant]
     Active Substance: METOPROLOL
  27. MULTIVITAMIN [Concomitant]
     Active Substance: VITAMINS

REACTIONS (14)
  - Myalgia [Unknown]
  - Dyspnoea [Unknown]
  - Acute kidney injury [Unknown]
  - Fall [Recovered/Resolved]
  - Tremor [Unknown]
  - Deep vein thrombosis [Unknown]
  - Muscular weakness [Unknown]
  - Confusional state [Unknown]
  - Gait disturbance [Unknown]
  - Hypotension [Unknown]
  - Pain in extremity [Unknown]
  - Hypoglycaemia [Recovering/Resolving]
  - Back pain [Unknown]
  - Fatigue [Unknown]

NARRATIVE: CASE EVENT DATE: 20180702
